FAERS Safety Report 25352000 (Version 3)
Quarter: 2025Q3

REPORT INFORMATION
  Report Type: Spontaneous
  Country: TR (occurrence: TR)
  Receive Date: 20250523
  Receipt Date: 20250710
  Transmission Date: 20251020
  Serious: No
  Sender: PFIZER
  Company Number: TR-PFIZER INC-202500103668

PATIENT

DRUGS (1)
  1. REFACTO AF [Suspect]
     Active Substance: MOROCTOCOG ALFA

REACTIONS (1)
  - Product contamination physical [Unknown]
